FAERS Safety Report 7093393-0 (Version None)
Quarter: 2010Q4

REPORT INFORMATION
  Report Type: 
  Country: None (occurrence: None)
  Receive Date: 20101110
  Receipt Date: 20101101
  Transmission Date: 20110411
  Serious: Yes (Death, Other)
  Sender: FDA-Public Use
  Company Number: TW-JNJFOC-20100501868

PATIENT
  Age: 47 Year
  Sex: Male

DRUGS (15)
  1. LEVOFLOXACIN [Suspect]
     Indication: MYCOBACTERIUM AVIUM COMPLEX INFECTION
     Route: 048
  2. SPORANOX [Suspect]
     Indication: PENICILLIOSIS
     Route: 048
  3. SPORANOX [Suspect]
     Indication: MYCOBACTERIUM AVIUM COMPLEX INFECTION
     Dosage: 250 MG/ 50 ML
     Route: 042
  4. MYAMBUTOL [Suspect]
     Indication: MYCOBACTERIUM AVIUM COMPLEX INFECTION
     Route: 048
  5. VALACYCLOVIR [Suspect]
     Indication: HERPES ZOSTER
     Route: 048
  6. CLARITHROMYCIN [Suspect]
     Indication: MYCOBACTERIUM AVIUM COMPLEX INFECTION
     Route: 065
  7. EFAVIRENZ [Suspect]
     Indication: HIV INFECTION
     Route: 065
  8. LAMIVUDINE [Suspect]
     Indication: HIV INFECTION
     Route: 065
  9. STAVUDINE [Suspect]
     Indication: HIV INFECTION
     Route: 065
  10. ACYCLOVIR SODIUM [Suspect]
     Indication: HERPES ZOSTER
     Route: 042
  11. ACYCLOVIR SODIUM [Suspect]
     Route: 042
  12. ESTAZOLAM [Suspect]
     Indication: ILL-DEFINED DISORDER
     Route: 065
  13. PREDNISOLONE [Suspect]
     Indication: ILL-DEFINED DISORDER
     Route: 065
  14. PREDNISOLONE [Suspect]
     Route: 065
  15. METOCLOPRAMIDE [Suspect]
     Indication: ILL-DEFINED DISORDER
     Route: 065

REACTIONS (7)
  - METABOLIC ACIDOSIS [None]
  - NEUTROPENIA [None]
  - PYREXIA [None]
  - RESPIRATORY FAILURE [None]
  - SEPTIC SHOCK [None]
  - STEVENS-JOHNSON SYNDROME [None]
  - TOXIC EPIDERMAL NECROLYSIS [None]
